FAERS Safety Report 7117522-5 (Version None)
Quarter: 2010Q4

REPORT INFORMATION
  Report Type: 
  Country: None (occurrence: None)
  Receive Date: 20101122
  Receipt Date: 20101115
  Transmission Date: 20110411
  Serious: Yes (Hospitalization)
  Sender: FDA-Public Use
  Company Number: US-US-EMD SERONO, INC.-7022954

PATIENT
  Sex: Female
  Weight: 95 kg

DRUGS (2)
  1. REBIF [Suspect]
     Indication: MULTIPLE SCLEROSIS
     Route: 058
     Dates: start: 20060901
  2. LISINOPRIL [Concomitant]
     Indication: HYPERTENSION
     Dates: end: 20101001

REACTIONS (4)
  - HEART RATE INCREASED [None]
  - INFLUENZA LIKE ILLNESS [None]
  - MUSCLE SPASMS [None]
  - RHINORRHOEA [None]
